FAERS Safety Report 7407496-1 (Version None)
Quarter: 2011Q2

REPORT INFORMATION
  Report Type: 
  Country: None (occurrence: None)
  Receive Date: 20110412
  Receipt Date: 20110401
  Transmission Date: 20111010
  Serious: Yes (Hospitalization)
  Sender: FDA-Public Use
  Company Number: US-BIOGENIDEC-2009BI026691

PATIENT
  Age: 48 Year
  Sex: Female

DRUGS (4)
  1. OXYBUTYNIN [Concomitant]
     Indication: MUSCLE SPASMS
  2. MAGNESIUM [Concomitant]
     Indication: MUSCLE SPASMS
  3. VITAMIN D [Concomitant]
     Indication: PRODUCT USED FOR UNKNOWN INDICATION
  4. TYSABRI [Suspect]
     Indication: MULTIPLE SCLEROSIS
     Route: 042
     Dates: start: 20090619

REACTIONS (11)
  - VAGINITIS BACTERIAL [None]
  - URINARY TRACT INFECTION [None]
  - PAIN [None]
  - ORAL HERPES [None]
  - MENORRHAGIA [None]
  - APPENDICITIS [None]
  - HYSTERECTOMY [None]
  - COAGULOPATHY [None]
  - BLADDER REPAIR [None]
  - ANAEMIA [None]
  - VAGINAL INFECTION [None]
